FAERS Safety Report 10512053 (Version 1)
Quarter: 2014Q4

REPORT INFORMATION
  Report Type: Spontaneous
  Country: AU (occurrence: AU)
  Receive Date: 20141010
  Receipt Date: 20141010
  Transmission Date: 20150528
  Serious: Yes (Hospitalization)
  Sender: FDA-Public Use
  Company Number: AU-BAUSCH-BL-2014-006340

PATIENT
  Age: 54 Year
  Sex: Male

DRUGS (4)
  1. TICARCILLIN/CLAVULANATE POTASSIUM [Suspect]
     Active Substance: CLAVULANATE POTASSIUM\TICARCILLIN
     Indication: GANGRENE
  2. CEFTRIAXONE. [Suspect]
     Active Substance: CEFTRIAXONE
     Indication: GANGRENE
  3. METRONIDAZOLE. [Suspect]
     Active Substance: METRONIDAZOLE
     Indication: GANGRENE
  4. VANCOMYCIN [Suspect]
     Active Substance: VANCOMYCIN
     Indication: GANGRENE

REACTIONS (1)
  - Tubulointerstitial nephritis [Unknown]
